FAERS Safety Report 24095698 (Version 1)
Quarter: 2024Q3

REPORT INFORMATION
  Report Type: Report from Study
  Country: US (occurrence: US)
  Receive Date: 20240716
  Receipt Date: 20240716
  Transmission Date: 20241016
  Serious: No
  Sender: ACADIA PHARMACEUTICALS
  Company Number: US-ACADIA PHARMACEUTICALS INC.-ACA-2024-PIM-002675

PATIENT
  Age: 11 Year
  Sex: Male

DRUGS (20)
  1. NUPLAZID [Suspect]
     Active Substance: PIMAVANSERIN TARTRATE
     Indication: Tardive dyskinesia
     Dosage: 10 MILLIGRAM, QD
     Route: 048
  2. NUPLAZID [Suspect]
     Active Substance: PIMAVANSERIN TARTRATE
     Indication: Autism spectrum disorder
     Dosage: 20 MILLIGRAM, QD
     Route: 048
     Dates: start: 20240202
  3. NUPLAZID [Suspect]
     Active Substance: PIMAVANSERIN TARTRATE
     Indication: Irritability
     Dosage: 20 MILLIGRAM, QD
     Route: 048
     Dates: start: 20240314
  4. LORAZEPAM [Concomitant]
     Active Substance: LORAZEPAM
     Indication: Catatonia
     Dosage: 0.5MG
  5. LORAZEPAM [Concomitant]
     Active Substance: LORAZEPAM
     Dosage: 2 MILLIGRAM, TID
     Route: 048
  6. SENNA LEAF [Concomitant]
     Active Substance: SENNA LEAF
     Indication: Constipation
     Dosage: 15 MILLIGRAM
  7. GUANFACINE [Concomitant]
     Active Substance: GUANFACINE
     Dosage: 2 MILLIGRAM, QD
     Route: 048
  8. DEUTETRABENAZINE [Concomitant]
     Active Substance: DEUTETRABENAZINE
     Dosage: 6 MILLIGRAM, BID
     Route: 048
  9. TOPIRAMATE [Concomitant]
     Active Substance: TOPIRAMATE
     Dosage: 100 MILLIGRAM, BID
  10. ABILIFY [Concomitant]
     Active Substance: ARIPIPRAZOLE
  11. RISPERIDONE [Concomitant]
     Active Substance: RISPERIDONE
     Indication: Aggression
     Dosage: 2 MILLIGRAM, QD
  12. SEROQUEL [Concomitant]
     Active Substance: QUETIAPINE FUMARATE
     Indication: Aggression
     Dosage: 500 MILLIGRAM, QD
  13. DEPAKOTE [Concomitant]
     Active Substance: DIVALPROEX SODIUM
  14. CLONIDINE [Concomitant]
     Active Substance: CLONIDINE
  15. TETRABENAZINE [Concomitant]
     Active Substance: TETRABENAZINE
     Indication: Tardive dyskinesia
  16. TRAZODONE [Concomitant]
     Active Substance: TRAZODONE HYDROCHLORIDE
     Dosage: 150 MILLIGRAM, QD
     Route: 048
  17. TRAZODONE [Concomitant]
     Active Substance: TRAZODONE HYDROCHLORIDE
     Dosage: 50 MILLIGRAM, TID
     Route: 048
  18. MELATONIN [Concomitant]
     Active Substance: MELATONIN
     Dosage: 5 MILLIGRAM, QD
     Route: 048
  19. TOPAMAX [Concomitant]
     Active Substance: TOPIRAMATE
     Dosage: 200 MILLIGRAM, BID
     Dates: start: 20231110
  20. AUSTEDO [Concomitant]
     Active Substance: DEUTETRABENAZINE

REACTIONS (5)
  - Incorrect dose administered [Unknown]
  - Drug effective for unapproved indication [Unknown]
  - Catatonia [Recovering/Resolving]
  - Aggression [Unknown]
  - Off label use [Unknown]

NARRATIVE: CASE EVENT DATE: 20240325
